FAERS Safety Report 6038163-7 (Version None)
Quarter: 2009Q1

REPORT INFORMATION
  Report Type: 
  Country: None (occurrence: None)
  Receive Date: 20090113
  Receipt Date: 20090113
  Transmission Date: 20090719
  Serious: Yes (Other)
  Sender: FDA-Public Use
  Company Number: None

PATIENT
  Sex: Female
  Weight: 68.0396 kg

DRUGS (1)
  1. LAMOTRIGINE [Suspect]
     Dosage: 100 2/DAY P.O.
     Route: 048
     Dates: start: 20080101

REACTIONS (2)
  - DEPRESSION [None]
  - PRODUCT QUALITY ISSUE [None]
